FAERS Safety Report 24933960 (Version 1)
Quarter: 2025Q1

REPORT INFORMATION
  Report Type: Report from Study
  Country: US (occurrence: US)
  Receive Date: 20250206
  Receipt Date: 20250206
  Transmission Date: 20250409
  Serious: Yes (Hospitalization, Other)
  Sender: EXELIXIS
  Company Number: US-EXELIXIS-CABO-24076490

PATIENT
  Age: 64 Year
  Sex: Male

DRUGS (26)
  1. CABOMETYX [Suspect]
     Active Substance: CABOZANTINIB S-MALATE
     Indication: Renal cell carcinoma
     Dosage: 40 MG, QD
     Dates: start: 20240206, end: 202403
  2. CABOMETYX [Suspect]
     Active Substance: CABOZANTINIB S-MALATE
     Dosage: 40 MG, QD
     Dates: start: 20240530
  3. OPDIVO [Suspect]
     Active Substance: NIVOLUMAB
     Indication: Renal cell carcinoma
     Dosage: UNK UNK, Q2WEEKS
     Dates: start: 20240206
  4. ASPIRIN [Concomitant]
     Active Substance: ASPIRIN
  5. ATORVASTATIN [Concomitant]
     Active Substance: ATORVASTATIN
  6. VITAMINS [Concomitant]
     Active Substance: VITAMINS
  7. EUTHYROX [Concomitant]
     Active Substance: LEVOTHYROXINE SODIUM
  8. FAMOTIDINE [Concomitant]
     Active Substance: FAMOTIDINE
  9. FOLIC ACID [Concomitant]
     Active Substance: FOLIC ACID
  10. GABAPENTIN [Concomitant]
     Active Substance: GABAPENTIN
  11. IRON [Concomitant]
     Active Substance: IRON
  12. NOVOLOG [Concomitant]
     Active Substance: INSULIN ASPART
  13. PRASUGREL [Concomitant]
     Active Substance: PRASUGREL
  14. PREDNISONE [Concomitant]
     Active Substance: PREDNISONE
  15. VITAMIN B12 [Concomitant]
     Active Substance: CYANOCOBALAMIN
  16. TRAMADOL [Concomitant]
     Active Substance: TRAMADOL
  17. TRIAMCINOLONE [Concomitant]
     Active Substance: TRIAMCINOLONE
  18. UREA [Concomitant]
     Active Substance: UREA
  19. VALSARTAN [Concomitant]
     Active Substance: VALSARTAN
  20. TRESIBA [Concomitant]
     Active Substance: INSULIN DEGLUDEC
  21. AMLODIPINE [Concomitant]
     Active Substance: AMLODIPINE BESYLATE
  22. CARVEDILOL [Concomitant]
     Active Substance: CARVEDILOL
  23. FUROSEMIDE [Concomitant]
     Active Substance: FUROSEMIDE
  24. HUMALOG [Concomitant]
     Active Substance: INSULIN LISPRO
  25. INLYTA [Concomitant]
     Active Substance: AXITINIB
  26. LEVOTHYROXINE [Concomitant]
     Active Substance: LEVOTHYROXINE

REACTIONS (12)
  - Arthralgia [Recovered/Resolved]
  - Metastases to lung [Unknown]
  - Metastases to adrenals [Unknown]
  - Pain in extremity [Unknown]
  - Skin ulcer [Unknown]
  - Rash [Unknown]
  - Diarrhoea [Unknown]
  - Hyperkeratosis [Unknown]
  - Tooth disorder [Unknown]
  - Faeces discoloured [Unknown]
  - Gait disturbance [Unknown]
  - Blood potassium increased [Unknown]

NARRATIVE: CASE EVENT DATE: 20240323
